FAERS Safety Report 9479537 (Version 2)
Quarter: 2013Q3

REPORT INFORMATION
  Report Type: Report from Study
  Country: DE (occurrence: DE)
  Receive Date: 20130827
  Receipt Date: 20130827
  Transmission Date: 20140515
  Serious: Yes (Hospitalization, Other)
  Sender: FDA-Public Use
  Company Number: DE-ROCHE-570586

PATIENT
  Age: 53 Year
  Sex: Male
  Weight: 94 kg

DRUGS (14)
  1. RITUXIMAB [Suspect]
     Indication: RHEUMATOID ARTHRITIS
     Dosage: TAKEN DAILY, FORM: INFUSION.
     Route: 042
     Dates: start: 20071220, end: 20080103
  2. RITUXIMAB [Suspect]
     Route: 042
  3. CELEBREX [Suspect]
     Indication: PAIN
     Dosage: AS NEEDED.
     Route: 048
     Dates: start: 200710, end: 200803
  4. MTX [Suspect]
     Indication: PRODUCT USED FOR UNKNOWN INDICATION
     Route: 065
     Dates: start: 200704, end: 200706
  5. LEFLUNOMIDE [Suspect]
     Indication: RHEUMATOID ARTHRITIS
     Route: 048
     Dates: start: 200712, end: 200803
  6. ETHIONAMIDE [Suspect]
     Indication: PRODUCT USED FOR UNKNOWN INDICATION
     Route: 065
  7. IRBESARTAN [Suspect]
     Indication: CARDIAC FAILURE
     Route: 048
  8. GENERIC COMPONENT(S) NOT KNOWN [Suspect]
     Indication: PRODUCT USED FOR UNKNOWN INDICATION
     Dosage: DRUG NAME: ADA (AZODICARBONAMID)
     Route: 065
  9. PREDNISONE [Suspect]
     Indication: RHEUMATOID ARTHRITIS
     Route: 048
     Dates: start: 1999
  10. ASS [Concomitant]
     Dosage: DRUG NAME: ASS 100.
     Route: 065
  11. BISOPROLOL [Concomitant]
  12. XIPAMID [Concomitant]
  13. OMEPRAZOLE [Concomitant]
  14. ALENDRONATE SODIUM [Concomitant]
     Route: 065

REACTIONS (4)
  - Cerebral infarction [Recovering/Resolving]
  - Aortic valve incompetence [Not Recovered/Not Resolved]
  - Visual field defect [Unknown]
  - Cerebrovascular accident [Unknown]
